FAERS Safety Report 10716782 (Version 10)
Quarter: 2015Q1

REPORT INFORMATION
  Report Type: Report from Study
  Country: DE (occurrence: DE)
  Receive Date: 20150116
  Receipt Date: 20150324
  Transmission Date: 20150721
  Serious: Yes (Other)
  Sender: FDA-Public Use
  Company Number: PHHO2015DE000728

PATIENT
  Age: 7 Year
  Sex: Male
  Weight: 25 kg

DRUGS (6)
  1. LDK378 [Suspect]
     Active Substance: CERITINIB
     Indication: NON-SMALL CELL LUNG CANCER
     Dosage: 500 MG, QD
     Route: 048
     Dates: start: 20141222, end: 20150107
  2. NOVALGIN [Suspect]
     Active Substance: METAMIZOLE SODIUM
     Indication: PROPHYLAXIS
     Dosage: 250 MG, QD
     Route: 042
     Dates: start: 20150105, end: 20150107
  3. OMEPRAZOLE. [Suspect]
     Active Substance: OMEPRAZOLE
     Indication: GASTRITIS PROPHYLAXIS
     Dosage: 10 MG, QD
     Route: 048
     Dates: start: 20150107, end: 20150107
  4. AMPHOTERICIN B. [Concomitant]
     Active Substance: AMPHOTERICIN B
     Indication: INFECTION PROPHYLAXIS
     Dosage: 200 MG, QID
     Route: 048
     Dates: start: 20140717, end: 20150107
  5. LDK378 [Suspect]
     Active Substance: CERITINIB
     Dosage: 430 MG/M2, UNK
     Route: 048
     Dates: start: 20150119
  6. CLONIDIN [Concomitant]
     Indication: STEROID THERAPY
     Dosage: 75 UG, QID
     Route: 048
     Dates: start: 20141224

REACTIONS (2)
  - Amylase increased [Recovered/Resolved]
  - Lipase increased [Recovering/Resolving]

NARRATIVE: CASE EVENT DATE: 20150107
